FAERS Safety Report 11193686 (Version 1)
Quarter: 2015Q2

REPORT INFORMATION
  Report Type: Spontaneous
  Country: US (occurrence: US)
  Receive Date: 20150616
  Receipt Date: 20150616
  Transmission Date: 20150821
  Serious: No
  Sender: FDA-Public Use
  Company Number: US-PFIZER INC-2015199881

PATIENT
  Age: 67 Year
  Sex: Female
  Weight: 96 kg

DRUGS (8)
  1. LOSARTAN AND HYDROCHLOROTHIAZIDE [Concomitant]
     Active Substance: HYDROCHLOROTHIAZIDE\LOSARTAN POTASSIUM
     Indication: BLOOD PRESSURE
     Dosage: 1 DF, UNK [HYDROCHLOROTHIAZIDE 25MG]/ [LOSARTAN POTASSIUM 100MG]
     Route: 048
  2. WARFARIN [Concomitant]
     Active Substance: WARFARIN
     Indication: THROMBOSIS PROPHYLAXIS
     Dosage: 6 MG, 1X/DAY
     Route: 048
  3. PRAVASTATIN SODIUM. [Concomitant]
     Active Substance: PRAVASTATIN SODIUM
     Dosage: 10 MG, DAILY(10MG ONE TABLET BY MOUTH EVERY DAY)
     Route: 048
  4. ATENOLOL. [Concomitant]
     Active Substance: ATENOLOL
     Dosage: 50 MG, DAILY (50MG ONE TABLET EVERY DAY BY MOUTH)
     Route: 048
  5. METFORMIN [Concomitant]
     Active Substance: METFORMIN HYDROCHLORIDE
     Dosage: 1000 MG, 2X/DAY
  6. LEVOTHYROXINE [Concomitant]
     Active Substance: LEVOTHYROXINE
     Indication: THYROID HORMONE REPLACEMENT THERAPY
     Dosage: 0.15 MG, DAILY (150MCG TABLET EVERYDAY FOR HER THYROID 15 YEARS HORMONE)
  7. LYRICA [Suspect]
     Active Substance: PREGABALIN
     Indication: DIABETIC NEUROPATHY
     Dosage: 75 MG, 1X/DAY
  8. LYRICA [Suspect]
     Active Substance: PREGABALIN
     Indication: NERVE INJURY
     Dosage: 75 MG, 3X/DAY (75MG ONE CAPSULE THREE TIMES A DAY BY MOUTH)
     Route: 048
     Dates: start: 201503

REACTIONS (2)
  - Pain [Unknown]
  - Product use issue [Unknown]
